FAERS Safety Report 11756791 (Version 5)
Quarter: 2015Q4

REPORT INFORMATION
  Report Type: Report from Study
  Country: US (occurrence: US)
  Receive Date: 20151120
  Receipt Date: 20151208
  Transmission Date: 20160304
  Serious: Yes (Other)
  Sender: FDA-Public Use
  Company Number: US-AMGEN-USASL2015121705

PATIENT
  Age: 73 Year
  Sex: Male

DRUGS (2)
  1. ENBREL [Suspect]
     Active Substance: ETANERCEPT
     Indication: RHEUMATOID ARTHRITIS
     Dosage: 50 MG, QWK
     Route: 065
  2. METHOTREXATE [Concomitant]
     Active Substance: METHOTREXATE
     Dosage: UNK

REACTIONS (12)
  - Oral disorder [Not Recovered/Not Resolved]
  - Hypoacusis [Unknown]
  - Nasopharyngitis [Recovering/Resolving]
  - Dysphonia [Unknown]
  - Incorrect product storage [Unknown]
  - Rheumatoid arthritis [Recovering/Resolving]
  - Osteomyelitis [Recovered/Resolved]
  - Upper respiratory tract congestion [Unknown]
  - Furuncle [Unknown]
  - Infection [Recovered/Resolved]
  - Bone disorder [Unknown]
  - Pharyngeal disorder [Unknown]

NARRATIVE: CASE EVENT DATE: 2015
